FAERS Safety Report 14880391 (Version 1)
Quarter: 2018Q2

REPORT INFORMATION
  Report Type: Spontaneous
  Country: US (occurrence: US)
  Receive Date: 20180425
  Receipt Date: 20180425
  Transmission Date: 20180711
  Serious: No
  Sender: FDA-Public Use
  Company Number: None

PATIENT
  Age: 47 Year
  Sex: Male

DRUGS (1)
  1. GLATIRAMER 40MG  PFS INJ (12/BOX) [Suspect]
     Active Substance: GLATIRAMER

REACTIONS (2)
  - Injection site discomfort [None]
  - Product outer packaging issue [None]

NARRATIVE: CASE EVENT DATE: 20180425
